FAERS Safety Report 8261556-4 (Version None)
Quarter: 2012Q2

REPORT INFORMATION
  Report Type: 
  Country: None (occurrence: None)
  Receive Date: 20120405
  Receipt Date: 20120404
  Transmission Date: 20120825
  Serious: Yes (Other)
  Sender: FDA-Public Use
  Company Number: IR-BAYER-2011-027867

PATIENT
  Age: 26 Year
  Sex: Female

DRUGS (1)
  1. BETASERON [Suspect]
     Indication: RELAPSING-REMITTING MULTIPLE SCLEROSIS
     Dosage: 8 MIU, QOD

REACTIONS (3)
  - JAUNDICE [None]
  - ANAEMIA HAEMOLYTIC AUTOIMMUNE [None]
  - FATIGUE [None]
